FAERS Safety Report 17804388 (Version 10)
Quarter: 2022Q1

REPORT INFORMATION
  Report Type: Report from Study
  Country: AT (occurrence: AT)
  Receive Date: 20200519
  Receipt Date: 20220204
  Transmission Date: 20220423
  Serious: Yes (Other)
  Sender: FDA-Public Use
  Company Number: AT-AMGEN-AUTNI2020078797

PATIENT
  Age: 77 Year
  Sex: Male
  Weight: 86 kg

DRUGS (8)
  1. PANITUMUMAB [Suspect]
     Active Substance: PANITUMUMAB
     Indication: Colorectal cancer metastatic
     Dosage: UNK
     Route: 042
     Dates: start: 20190806
  2. AMLODIPINE [Concomitant]
     Active Substance: AMLODIPINE BESYLATE
     Dosage: 5 MILLIGRAM
     Route: 048
     Dates: start: 2005
  3. MESALAMINE [Concomitant]
     Active Substance: MESALAMINE
     Dosage: 2 UNK
     Route: 048
     Dates: start: 2010
  4. LEVOTHYROXINE SODIUM [Concomitant]
     Active Substance: LEVOTHYROXINE SODIUM
     Dosage: 125 UNK
     Route: 048
     Dates: start: 1999
  5. DEXAMETHASONE [Concomitant]
     Active Substance: DEXAMETHASONE
     Dosage: 4 MILLIGRAM
     Route: 048
     Dates: start: 20190806
  6. GRANISETRON [Concomitant]
     Active Substance: GRANISETRON
     Dosage: 1 UNK
     Route: 042
     Dates: start: 20190806
  7. DEXPANTHENOL [Concomitant]
     Active Substance: DEXPANTHENOL
     Dosage: 1 UNK
     Route: 050
     Dates: start: 20190917
  8. ATROPINE [Concomitant]
     Active Substance: ATROPINE
     Dosage: 0.25 MILLIGRAM
     Route: 042
     Dates: start: 20190806

REACTIONS (2)
  - Polyneuropathy [Recovered/Resolved]
  - Decubitus ulcer [Not Recovered/Not Resolved]

NARRATIVE: CASE EVENT DATE: 20200305
